FAERS Safety Report 25963988 (Version 1)
Quarter: 2025Q4

REPORT INFORMATION
  Report Type: Spontaneous
  Country: PE (occurrence: PE)
  Receive Date: 20251027
  Receipt Date: 20251027
  Transmission Date: 20260119
  Serious: Yes (Other)
  Sender: ROCHE
  Company Number: PE-ROCHE-10000413328

PATIENT
  Sex: Female

DRUGS (1)
  1. KADCYLA [Suspect]
     Active Substance: ADO-TRASTUZUMAB EMTANSINE
     Indication: Breast cancer metastatic
     Route: 065
     Dates: start: 2023

REACTIONS (4)
  - Drug ineffective [Unknown]
  - Disease progression [Unknown]
  - Hepatic neoplasm [Unknown]
  - Metastases to liver [Unknown]
